FAERS Safety Report 18776927 (Version 1)
Quarter: 2021Q1

REPORT INFORMATION
  Report Type: Spontaneous
  Country: IT (occurrence: IT)
  Receive Date: 20210122
  Receipt Date: 20210122
  Transmission Date: 20210419
  Serious: Yes (Other)
  Sender: FDA-Public Use
  Company Number: IT-PFIZER INC-2021027383

PATIENT
  Age: 67 Year
  Sex: Female

DRUGS (2)
  1. METHOTREXATE SODIUM. [Suspect]
     Active Substance: METHOTREXATE SODIUM
     Indication: ALLOGENIC STEM CELL TRANSPLANTATION
     Dosage: UNK
  2. ENVARSUS XR [Suspect]
     Active Substance: TACROLIMUS
     Indication: ALLOGENIC STEM CELL TRANSPLANTATION
     Dosage: UNK

REACTIONS (5)
  - Vomiting [Unknown]
  - Asthenia [Unknown]
  - Apraxia [Unknown]
  - Off label use [Unknown]
  - Thrombotic microangiopathy [Unknown]
